FAERS Safety Report 7398906-7 (Version None)
Quarter: 2011Q1

REPORT INFORMATION
  Report Type: 
  Country: None (occurrence: None)
  Receive Date: 20110328
  Receipt Date: 20110118
  Transmission Date: 20110831
  Serious: Yes (Other)
  Sender: FDA-Public Use
  Company Number: IMP_05367_2011

PATIENT
  Sex: Female

DRUGS (1)
  1. FENOFIBRATE [Suspect]
     Indication: PRODUCT USED FOR UNKNOWN INDICATION
     Dosage: (1 DF)

REACTIONS (5)
  - HYPERTHYROIDISM [None]
  - FALL [None]
  - VERTIGO [None]
  - DIZZINESS [None]
  - HOT FLUSH [None]
